FAERS Safety Report 7800145-X (Version None)
Quarter: 2011Q4

REPORT INFORMATION
  Report Type: 
  Country: None (occurrence: None)
  Receive Date: 20111006
  Receipt Date: 20110926
  Transmission Date: 20120403
  Serious: Yes (Hospitalization)
  Sender: FDA-Public Use
  Company Number: US-MERCK-1107USA01262

PATIENT
  Age: 76 Year
  Sex: Female

DRUGS (2)
  1. FOSAMAX [Suspect]
     Indication: OSTEOPENIA
     Route: 048
     Dates: start: 19940101, end: 20080601
  2. ALENDRONATE SODIUM [Suspect]
     Indication: OSTEOPENIA
     Route: 048
     Dates: start: 20080701, end: 20090601

REACTIONS (10)
  - OSTEOPOROSIS [None]
  - BACK PAIN [None]
  - FALL [None]
  - FEMUR FRACTURE [None]
  - TOOTH DISORDER [None]
  - WRIST FRACTURE [None]
  - ARTHROPATHY [None]
  - VITAMIN D DEFICIENCY [None]
  - CALCIUM DEFICIENCY [None]
  - INTERVERTEBRAL DISC DEGENERATION [None]
